FAERS Safety Report 6761112-0 (Version None)
Quarter: 2010Q2

REPORT INFORMATION
  Report Type: 
  Country: None (occurrence: None)
  Receive Date: 20100608
  Receipt Date: 20100603
  Transmission Date: 20101027
  Serious: Yes (Hospitalization)
  Sender: FDA-Public Use
  Company Number: DE-WYE-G06217510

PATIENT
  Sex: Female

DRUGS (3)
  1. LORAZEPAM [Suspect]
     Dosage: UNKNOWN AMOUNT OF 2.5 MG TABLETS (OVERDOSE AMOUNT UNKNOWN)
     Route: 048
     Dates: start: 20100602, end: 20100602
  2. ETHANOL [Suspect]
     Dosage: OVERDOSE AMOUNT UNKNOWN
     Route: 048
     Dates: start: 20100602, end: 20100602
  3. TREVILOR RETARD [Suspect]
     Dosage: 60 CAPSULES (OVERDOSE AMOUNT 5250 MG)
     Route: 048
     Dates: start: 20100602, end: 20100602

REACTIONS (6)
  - ACIDOSIS [None]
  - BLOOD CREATINE PHOSPHOKINASE INCREASED [None]
  - CARDIOVASCULAR INSUFFICIENCY [None]
  - INTENTIONAL OVERDOSE [None]
  - RESPIRATORY DEPRESSION [None]
  - SUICIDE ATTEMPT [None]
